FAERS Safety Report 17335160 (Version 3)
Quarter: 2020Q2

REPORT INFORMATION
  Report Type: Spontaneous
  Country: PT (occurrence: PT)
  Receive Date: 20200128
  Receipt Date: 20200502
  Transmission Date: 20200713
  Serious: Yes (Life-Threatening, Hospitalization)
  Sender: FDA-Public Use
  Company Number: PT-TEVA-2020-PT-1175346

PATIENT
  Age: 76 Year
  Sex: Female
  Weight: 120 kg

DRUGS (6)
  1. DESLORATADINE. [Concomitant]
     Active Substance: DESLORATADINE
     Route: 048
  2. ROSUVASTATIN. [Concomitant]
     Active Substance: ROSUVASTATIN
     Route: 048
  3. LEVOFLOXACIN. [Suspect]
     Active Substance: LEVOFLOXACIN
     Indication: DYSPNOEA
     Route: 048
     Dates: start: 20191228
  4. AAS [Concomitant]
     Active Substance: ASPIRIN
     Route: 048
  5. TELMISARTAN + HIDROCLOROTIAZIDA [Concomitant]
     Route: 048
  6. LERCANIDIPINE [Concomitant]
     Active Substance: LERCANIDIPINE
     Route: 048

REACTIONS (4)
  - Swelling [Recovered/Resolved]
  - Dyspnoea [Unknown]
  - Erythema [Recovered/Resolved]
  - Tongue oedema [Recovered/Resolved]

NARRATIVE: CASE EVENT DATE: 20191228
